FAERS Safety Report 4758821-1 (Version None)
Quarter: 2005Q3

REPORT INFORMATION
  Report Type: 
  Country: None (occurrence: None)
  Receive Date: 20050901
  Receipt Date: 20050322
  Transmission Date: 20060218
  Serious: Yes (Hospitalization, Disabling)
  Sender: FDA-Public Use
  Company Number: US-MERCK-0503USA04218

PATIENT
  Age: 59 Year
  Sex: Female
  Weight: 80 kg

DRUGS (9)
  1. VIOXX [Suspect]
     Indication: ARTHRITIS
     Route: 048
     Dates: start: 20020201, end: 20030313
  2. VASOTEC RPD [Concomitant]
     Indication: CARDIAC DISORDER
     Route: 065
     Dates: start: 20030301, end: 20050101
  3. PREMPRO [Concomitant]
     Indication: MENOPAUSE
     Route: 065
     Dates: start: 20000101, end: 20030301
  4. PREMPRO [Concomitant]
     Route: 065
     Dates: start: 20000101, end: 20030301
  5. PREMPRO [Concomitant]
     Route: 065
     Dates: start: 20000101, end: 20030301
  6. PREMPRO [Concomitant]
     Route: 065
     Dates: start: 20000101, end: 20030301
  7. APAP TAB [Concomitant]
     Indication: ARTHRALGIA
     Route: 065
     Dates: start: 20020201
  8. TYLENOL [Concomitant]
     Indication: ARTHRALGIA
     Route: 065
     Dates: start: 20020301, end: 20050301
  9. TYLENOL [Concomitant]
     Route: 065
     Dates: start: 20020301, end: 20050301

REACTIONS (6)
  - ARTHROPATHY [None]
  - CEREBROVASCULAR ACCIDENT [None]
  - EYE HAEMORRHAGE [None]
  - HYPERTENSION [None]
  - KNEE ARTHROPLASTY [None]
  - MYOCARDIAL INFARCTION [None]
